FAERS Safety Report 14651235 (Version 1)
Quarter: 2018Q1

REPORT INFORMATION
  Report Type: Spontaneous
  Country: US (occurrence: US)
  Receive Date: 20180316
  Receipt Date: 20180316
  Transmission Date: 20180509
  Serious: No
  Sender: FDA-Public Use
  Company Number: US-009507513-1803USA006583

PATIENT
  Sex: Male

DRUGS (2)
  1. NEXIUM I.V. [Concomitant]
     Active Substance: ESOMEPRAZOLE SODIUM
  2. CLARINEX [Suspect]
     Active Substance: DESLORATADINE
     Indication: RESPIRATORY TRACT CONGESTION
     Dosage: 5 MG, UNK
     Route: 048

REACTIONS (4)
  - Ear pain [Not Recovered/Not Resolved]
  - Drug dose omission [Unknown]
  - Respiratory tract congestion [Not Recovered/Not Resolved]
  - Product availability issue [Unknown]
